FAERS Safety Report 5253911-1 (Version None)
Quarter: 2007Q1

REPORT INFORMATION
  Report Type: 
  Country: None (occurrence: None)
  Receive Date: 20070228
  Receipt Date: 20070228
  Transmission Date: 20070707
  Serious: Yes (Hospitalization)
  Sender: FDA-Public Use
  Company Number: None

PATIENT
  Age: 34 Year
  Sex: Female

DRUGS (2)
  1. VORICONAZOLE 200 MG PO QD [Suspect]
     Indication: BRONCHOPULMONARY ASPERGILLOSIS
     Dosage: 200MG PO QD
     Route: 048
     Dates: start: 20060420
  2. PROGRAF [Suspect]
     Indication: RENAL TRANSPLANT
     Dosage: 0.5 MG PO QD
     Route: 048
     Dates: start: 20060121

REACTIONS (2)
  - HEPATITIS ACUTE [None]
  - MYOSITIS [None]
